FAERS Safety Report 11850041 (Version 2)
Quarter: 2016Q1

REPORT INFORMATION
  Report Type: Spontaneous
  Country: US (occurrence: US)
  Receive Date: 20151218
  Receipt Date: 20160324
  Transmission Date: 20160526
  Serious: Yes (Hospitalization)
  Sender: FDA-Public Use
  Company Number: US-JNJFOC-20151123193

PATIENT
  Age: 23 Year
  Sex: Female

DRUGS (2)
  1. ORTHO EVRA [Suspect]
     Active Substance: ETHINYL ESTRADIOL\NORELGESTROMIN
     Indication: CONTRACEPTION
     Dosage: 200-35 MCG
     Route: 062
     Dates: start: 201410, end: 201412
  2. ORTHO EVRA [Suspect]
     Active Substance: ETHINYL ESTRADIOL\NORELGESTROMIN
     Indication: CONTRACEPTION
     Route: 062

REACTIONS (8)
  - Paraesthesia [Recovering/Resolving]
  - VIth nerve disorder [Recovering/Resolving]
  - Intracranial pressure increased [Recovering/Resolving]
  - Phonophobia [Recovering/Resolving]
  - Hypertension [Recovering/Resolving]
  - Photophobia [Recovering/Resolving]
  - Superior sagittal sinus thrombosis [Recovering/Resolving]
  - Papilloedema [Recovering/Resolving]

NARRATIVE: CASE EVENT DATE: 201412
